FAERS Safety Report 21690423 (Version 2)
Quarter: 2023Q1

REPORT INFORMATION
  Report Type: Spontaneous
  Country: PL (occurrence: PL)
  Receive Date: 20221206
  Receipt Date: 20230124
  Transmission Date: 20230418
  Serious: Yes (Death, Other)
  Sender: FDA-Public Use
  Company Number: PL-BAYER-2022A166999

PATIENT
  Sex: Male

DRUGS (2)
  1. XARELTO [Suspect]
     Active Substance: RIVAROXABAN
     Indication: Arrhythmia prophylaxis
     Dosage: UNK, BID
     Route: 048
  2. XARELTO [Suspect]
     Active Substance: RIVAROXABAN
     Indication: Arrhythmia prophylaxis
     Route: 048

REACTIONS (5)
  - Cerebral haemorrhage [Fatal]
  - Cardio-respiratory arrest [Fatal]
  - Loss of consciousness [Unknown]
  - Head injury [Unknown]
  - Accident [Unknown]
